FAERS Safety Report 6119652-3 (Version None)
Quarter: 2009Q1

REPORT INFORMATION
  Report Type: 
  Country: None (occurrence: None)
  Receive Date: 20090316
  Receipt Date: 20090309
  Transmission Date: 20090719
  Serious: Yes (Hospitalization)
  Sender: FDA-Public Use
  Company Number: US-AVENTIS-200911906US

PATIENT
  Age: 69 Year
  Sex: Male

DRUGS (5)
  1. LANTUS [Suspect]
     Dosage: DOSE: UNK
     Dates: start: 20080101, end: 20090101
  2. LANTUS [Suspect]
     Route: 058
     Dates: start: 20090101
  3. LANTUS [Suspect]
     Route: 058
  4. COUMADIN [Concomitant]
  5. DIGOXIN [Concomitant]

REACTIONS (1)
  - TRANSIENT ISCHAEMIC ATTACK [None]
